FAERS Safety Report 10538236 (Version 1)
Quarter: 2014Q4

REPORT INFORMATION
  Report Type: Report from Study
  Country: SI (occurrence: SI)
  Receive Date: 20141023
  Receipt Date: 20141023
  Transmission Date: 20150529
  Serious: Yes (Hospitalization, Other)
  Sender: FDA-Public Use
  Company Number: SI-BAXTER-2014BAX062353

PATIENT

DRUGS (2)
  1. SEVOFLURAN BAXTER 250 ML PARA ZA INHALIRANJE, TEKOCINA [Suspect]
     Active Substance: SEVOFLURANE
     Indication: SEDATION
     Route: 065
  2. SEVOFLURAN BAXTER 250 ML PARA ZA INHALIRANJE, TEKOCINA [Suspect]
     Active Substance: SEVOFLURANE
     Dosage: FOR ADEQUATE SEDATION
     Route: 065

REACTIONS (1)
  - Choreoathetosis [Unknown]
